FAERS Safety Report 12229502 (Version 1)
Quarter: 2016Q2

REPORT INFORMATION
  Report Type: Spontaneous
  Country: US (occurrence: US)
  Receive Date: 20160401
  Receipt Date: 20160401
  Transmission Date: 20160815
  Serious: No
  Sender: FDA-Public Use
  Company Number: US-ACTAVIS-2006-05613

PATIENT
  Age: 47 Year
  Sex: Female

DRUGS (3)
  1. LEXAPRO [Concomitant]
     Active Substance: ESCITALOPRAM OXALATE
  2. NICOTINE POLACRILEX [Suspect]
     Active Substance: NICOTINE
     Indication: SMOKING CESSATION THERAPY
     Dosage: 2 MG, ABOUT 8 TIMES A DAY
     Route: 002
     Dates: start: 2000
  3. NICOTINE POLACRILEX [Suspect]
     Active Substance: NICOTINE
     Dosage: UNK, UNKNOWN
     Route: 002
     Dates: start: 20061019

REACTIONS (4)
  - Somnolence [Unknown]
  - Wrong technique in product usage process [Not Recovered/Not Resolved]
  - Incorrect drug administration duration [Not Recovered/Not Resolved]
  - Fatigue [Not Recovered/Not Resolved]

NARRATIVE: CASE EVENT DATE: 20061019
